FAERS Safety Report 14992637 (Version 1)
Quarter: 2018Q2

REPORT INFORMATION
  Report Type: Spontaneous
  Country: DE (occurrence: DE)
  Receive Date: 20180609
  Receipt Date: 20180609
  Transmission Date: 20180711
  Serious: Yes (Hospitalization)
  Sender: FDA-Public Use
  Company Number: DE-TEVA-2018-DE-903444

PATIENT
  Age: 46 Year
  Sex: Female
  Weight: 64 kg

DRUGS (13)
  1. IFOSFAMIDE. [Suspect]
     Active Substance: IFOSFAMIDE
     Dosage: ACCORDING TO THE SCHEME, SOLUTION FOR INJECTION / INFUSION
     Route: 042
  2. PANTOPRAZOL [Concomitant]
     Active Substance: PANTOPRAZOLE SODIUM
     Dosage: 1-0-1-0,
     Route: 048
  3. METOCLOPRAMIDE. [Concomitant]
     Active Substance: METOCLOPRAMIDE
     Dosage: NEED,
     Route: 048
  4. PREGABALIN. [Concomitant]
     Active Substance: PREGABALIN
     Dosage: 1-0-1-0,
     Route: 048
  5. TIOTROPIUM BROMIDE [Concomitant]
     Active Substance: TIOTROPIUM BROMIDE
     Dosage: 2-0-0-0, DOSIERAEROSOL
     Route: 055
  6. AMPHOTERICIN B. [Concomitant]
     Active Substance: AMPHOTERICIN B
     Dosage: 1-1-1-1, LOZENGES
     Route: 048
  7. ENOXAPARIN [Concomitant]
     Active Substance: ENOXAPARIN
     Dosage: 1-0-1-0, INJECTION / INFUSION SOLUTION
     Route: 058
  8. CETIRIZINE [Concomitant]
     Active Substance: CETIRIZINE HYDROCHLORIDE
     Dosage: 1-0-0-0,
     Route: 048
  9. DOXORUBICIN [Suspect]
     Active Substance: DOXORUBICIN
     Dosage: 41.4 MILLIGRAM DAILY;  ACCORDING TO THE SCHEME, SOLUTION FOR INJECTION / INFUSION
     Route: 042
  10. HYDROCHLOROTHIAZID [Concomitant]
     Active Substance: HYDROCHLOROTHIAZIDE
     Dosage: 1-0-1-0,
     Route: 048
  11. TOLPERISON [Concomitant]
     Active Substance: TOLPERISONE HYDROCHLORIDE
     Dosage: 1-1-1-0,
     Route: 048
  12. FORMOTEROL/BECLOMETASON [Concomitant]
     Dosage: 100|6 ?G, 1-1-1-0, DOSIERAEROSOL
     Route: 055
  13. VERAPAMIL [Concomitant]
     Active Substance: VERAPAMIL HYDROCHLORIDE
     Dosage: 1-0-1-0,
     Route: 048

REACTIONS (11)
  - Oedema peripheral [Unknown]
  - Rhabdomyosarcoma [Unknown]
  - Febrile infection [Unknown]
  - Anaemia [Unknown]
  - Diarrhoea [Unknown]
  - Dehydration [Unknown]
  - Pyrexia [Unknown]
  - Circulatory collapse [Unknown]
  - Orthostatic intolerance [Unknown]
  - Dyspnoea exertional [Unknown]
  - Dry skin [Unknown]
